FAERS Safety Report 8287087-3 (Version None)
Quarter: 2012Q2

REPORT INFORMATION
  Report Type: 
  Country: None (occurrence: None)
  Receive Date: 20120416
  Receipt Date: 20120402
  Transmission Date: 20120825
  Serious: Yes (Hospitalization)
  Sender: FDA-Public Use
  Company Number: AT-ROCHE-1040950

PATIENT
  Sex: Male
  Weight: 79 kg

DRUGS (8)
  1. LISINOPRIL [Concomitant]
     Indication: HYPERTENSION
     Dates: start: 20111006, end: 20120226
  2. SELOKEN RETARD [Concomitant]
     Indication: HYPERTENSION
     Dates: start: 20120227
  3. PEGINTERFERON ALFA-2A [Suspect]
     Indication: HEPATITIS C
     Dosage: DOSAGE FORM: SPI
     Route: 058
     Dates: start: 20110922, end: 20120206
  4. PANTOPRAZOLE SODIUM [Concomitant]
     Dosage: FOR PROPHYLAXIS
     Dates: start: 20120227
  5. DESLORATADINE [Concomitant]
     Dates: start: 20120202
  6. BLINDED BI 201335 (HCV PROTEASE INHIBITOR) [Suspect]
     Indication: HEPATITIS C
     Dosage: DOSAGE FORM: KAW
     Route: 048
     Dates: start: 20111215, end: 20120206
  7. COPEGUS [Suspect]
     Indication: HEPATITIS C
     Route: 048
     Dates: start: 20110922, end: 20120206
  8. ACECOMB [Concomitant]
     Indication: HYPERTENSION
     Dates: start: 20120227

REACTIONS (2)
  - BLISTER [None]
  - RASH MACULO-PAPULAR [None]
